FAERS Safety Report 20225649 (Version 1)
Quarter: 2021Q4

REPORT INFORMATION
  Report Type: Spontaneous
  Country: IN (occurrence: IN)
  Receive Date: 20211224
  Receipt Date: 20211224
  Transmission Date: 20220303
  Serious: Yes (Other)
  Sender: FDA-Public Use
  Company Number: IN-002147023-NVSC2021IN290367

PATIENT
  Age: 65 Year
  Sex: Female

DRUGS (1)
  1. RANIBIZUMAB [Suspect]
     Active Substance: RANIBIZUMAB
     Indication: Neovascular age-related macular degeneration
     Dosage: 4 DOSAGE FORM (4 INJECTIONS IN 4 MONTHS)
     Route: 065

REACTIONS (1)
  - Retinal oedema [Not Recovered/Not Resolved]
